FAERS Safety Report 17938963 (Version 1)
Quarter: 2020Q2

REPORT INFORMATION
  Report Type: Spontaneous
  Country: NL (occurrence: NL)
  Receive Date: 20200625
  Receipt Date: 20200625
  Transmission Date: 20200714
  Serious: Yes (Hospitalization, Other)
  Sender: FDA-Public Use
  Company Number: NL-MICRO LABS LIMITED-ML2020-01913

PATIENT
  Age: 63 Year
  Sex: Male

DRUGS (5)
  1. FENTANYL. [Concomitant]
     Active Substance: FENTANYL
  2. DICLOFENAC [Suspect]
     Active Substance: DICLOFENAC
     Dosage: 75MG DISSOLVED IN SODIUM CHLORIDE [SALINE]
     Route: 042
  3. PARACETAMOL [Concomitant]
     Active Substance: ACETAMINOPHEN
  4. PROPOFOL. [Concomitant]
     Active Substance: PROPOFOL
  5. SEVOFLURANE. [Concomitant]
     Active Substance: SEVOFLURANE

REACTIONS (1)
  - Kounis syndrome [Unknown]
